FAERS Safety Report 4767280-4 (Version None)
Quarter: 2005Q3

REPORT INFORMATION
  Report Type: 
  Country: None (occurrence: None)
  Receive Date: 20050913
  Receipt Date: 20050908
  Transmission Date: 20060218
  Serious: Yes (Hospitalization)
  Sender: FDA-Public Use
  Company Number: US-GLAXOSMITHKLINE-A0573485A

PATIENT
  Age: 52 Year
  Sex: Male

DRUGS (16)
  1. WELLBUTRIN [Suspect]
     Indication: DRUG USE FOR UNKNOWN INDICATION
     Dosage: 150MG PER DAY
     Route: 048
  2. FLAGYL [Concomitant]
  3. LEVAQUIN [Concomitant]
  4. ZYVOX [Concomitant]
  5. PREDNISONE [Concomitant]
  6. COUMADIN [Concomitant]
  7. LEXAPRO [Concomitant]
  8. MAGNESIUM [Concomitant]
  9. INSULIN [Concomitant]
  10. PROTONIX [Concomitant]
  11. LOTENSIN [Concomitant]
  12. NORVASC [Concomitant]
  13. COMBIVENT [Concomitant]
  14. NITROGLYCERIN [Concomitant]
  15. UNSPECIFIED MEDICATION [Concomitant]
  16. UNSPECIFIED MEDICATION [Concomitant]

REACTIONS (1)
  - DEAFNESS [None]
